FAERS Safety Report 21727393 (Version 1)
Quarter: 2022Q4

REPORT INFORMATION
  Report Type: Spontaneous
  Country: US (occurrence: None)
  Receive Date: 20221213
  Receipt Date: 20221213
  Transmission Date: 20230113
  Serious: Yes (Hospitalization, Other)
  Sender: FDA-Public Use
  Company Number: None

PATIENT
  Age: 67 Year
  Sex: Male
  Weight: 94.5 kg

DRUGS (1)
  1. VYVGART [Suspect]
     Active Substance: EFGARTIGIMOD ALFA-FCAB
     Indication: Myasthenia gravis
     Dosage: FREQUENCY : WEEKLY;?
     Route: 042
     Dates: start: 20220505

REACTIONS (2)
  - Arthralgia [None]
  - Dysphagia [None]

NARRATIVE: CASE EVENT DATE: 20221210
